FAERS Safety Report 5280476-0 (Version None)
Quarter: 2007Q1

REPORT INFORMATION
  Report Type: 
  Country: None (occurrence: None)
  Receive Date: 20061229
  Receipt Date: 20060925
  Transmission Date: 20070707
  Serious: Yes (Other)
  Sender: FDA-Public Use
  Company Number: 2006UW16644

PATIENT
  Age: 66 Year
  Sex: Male
  Weight: 86.182 kg

DRUGS (8)
  1. CRESTOR [Suspect]
     Indication: BLOOD CHOLESTEROL INCREASED
     Dosage: 10 MG PO
     Route: 048
     Dates: start: 20060201
  2. CRESTOR [Suspect]
     Indication: BLOOD CHOLESTEROL INCREASED
     Dosage: 5 MG PO
     Route: 048
  3. TRAZODONE HCL [Concomitant]
  4. CLONAZEPAM [Concomitant]
  5. CELEXA [Concomitant]
  6. NORVASC [Concomitant]
  7. ATACAND HCT [Concomitant]
  8. AMLODIPINE [Concomitant]

REACTIONS (4)
  - BLOOD CHOLESTEROL INCREASED [None]
  - FATIGUE [None]
  - INSOMNIA [None]
  - MYALGIA [None]
